FAERS Safety Report 4288413-2 (Version None)
Quarter: 2004Q1

REPORT INFORMATION
  Report Type: 
  Country: None (occurrence: None)
  Receive Date: 20040209
  Receipt Date: 20030930
  Transmission Date: 20041129
  Serious: No
  Sender: FDA-Public Use
  Company Number: US-GLAXOSMITHKLINE-A0428047A

PATIENT
  Age: 49 Year
  Sex: Female

DRUGS (5)
  1. PAXIL [Suspect]
     Indication: DEPRESSION
     Dosage: 50MG PER DAY
     Route: 048
     Dates: start: 20030908
  2. CLONAZEPAM [Concomitant]
  3. POTASSIUM [Concomitant]
  4. MAGNESIUM [Concomitant]
  5. IRON [Concomitant]

REACTIONS (2)
  - DEPRESSED MOOD [None]
  - MENSTRUAL DISORDER [None]
